FAERS Safety Report 7246761-8 (Version None)
Quarter: 2011Q1

REPORT INFORMATION
  Report Type: 
  Country: None (occurrence: None)
  Receive Date: 20110127
  Receipt Date: 20110120
  Transmission Date: 20110831
  Serious: Yes (Hospitalization, Other)
  Sender: FDA-Public Use
  Company Number: JP-BAYER-2011-007331

PATIENT
  Sex: Male
  Weight: 63 kg

DRUGS (14)
  1. LENDORMIN [Concomitant]
     Indication: INSOMNIA
     Dosage: DAILY DOSE .5 MG
     Route: 048
     Dates: start: 20090623
  2. NOVORAPID [Concomitant]
     Dosage: DAILY DOSE 26 U
     Route: 058
  3. NORVASC [Concomitant]
     Dosage: DAILY DOSE 2.5 MG
     Route: 048
  4. SORAFENIB (RAF KINASE INHIBITOR) [Suspect]
     Dosage: DAILY DOSE 400 MG
     Dates: start: 20090610, end: 20100108
  5. YODEL [Concomitant]
     Indication: CONSTIPATION
     Dosage: UNK
     Route: 048
  6. SORAFENIB (RAF KINASE INHIBITOR) [Suspect]
     Indication: HEPATIC NEOPLASM MALIGNANT
     Dosage: DAILY DOSE 800 MG
     Route: 048
     Dates: start: 20090526, end: 20090606
  7. UNCODEABLE ^UNCLASSIFIABLE^ [Concomitant]
     Indication: ENTEROCOLITIS
     Dosage: DAILY DOSE 3 DF
     Route: 048
     Dates: start: 20091027
  8. TAKEPRON [Concomitant]
     Dosage: DAILY DOSE 30 MG
     Route: 048
  9. LOXONIN [Concomitant]
     Dosage: UNK
     Route: 048
     Dates: start: 20090609, end: 20090609
  10. JUZENTAIHOTO [Concomitant]
     Dosage: DAILY DOSE 3 DF
     Route: 048
     Dates: start: 20090526
  11. MICARDIS [Concomitant]
     Dosage: DAILY DOSE 80 MG
     Route: 048
  12. LOXONIN [Concomitant]
     Indication: BACK PAIN
     Dosage: UNK
     Route: 023
     Dates: start: 20090811
  13. GASCON [Concomitant]
     Indication: ENTEROCOLITIS
     Dosage: DAILY DOSE 120 MG
     Route: 048
     Dates: start: 20091027
  14. INNOLET N [Concomitant]
     Dosage: DAILY DOSE 8 U
     Route: 058

REACTIONS (5)
  - LIVER DISORDER [None]
  - PALMAR-PLANTAR ERYTHRODYSAESTHESIA SYNDROME [None]
  - ALOPECIA [None]
  - HYPERTENSION [None]
  - GASTRIC ANTRAL VASCULAR ECTASIA [None]
